FAERS Safety Report 14212053 (Version 2)
Quarter: 2017Q4

REPORT INFORMATION
  Report Type: Report from Study
  Country: CA (occurrence: CA)
  Receive Date: 20171122
  Receipt Date: 20171129
  Transmission Date: 20180321
  Serious: Yes (Hospitalization, Other)
  Sender: FDA-Public Use
  Company Number: CA-JNJFOC-20171119544

PATIENT
  Age: 55 Year
  Sex: Female

DRUGS (1)
  1. REMICADE [Suspect]
     Active Substance: INFLIXIMAB
     Indication: CROHN^S DISEASE
     Route: 042
     Dates: start: 20171011

REACTIONS (3)
  - Hospitalisation [Unknown]
  - Pain [Unknown]
  - Colectomy [Unknown]

NARRATIVE: CASE EVENT DATE: 2017
